FAERS Safety Report 12328968 (Version 1)
Quarter: 2016Q2

REPORT INFORMATION
  Report Type: Spontaneous
  Country: DE (occurrence: DE)
  Receive Date: 20160503
  Receipt Date: 20160503
  Transmission Date: 20160815
  Serious: Yes (Other)
  Sender: FDA-Public Use
  Company Number: DE-DSJP-DSE-2016-115199

PATIENT

DRUGS (2)
  1. VOCADO HCT 20 MG/5 MG/12,5 MG [Suspect]
     Active Substance: AMLODIPINE BESYLATE\HYDROCHLOROTHIAZIDE\OLMESARTAN MEDOXOMIL
     Indication: HYPERTENSION
     Dosage: 20/5/12.5 MG/DAY
     Route: 048
     Dates: start: 20160120, end: 20160210
  2. THYROID HORMONES [Concomitant]
     Active Substance: UNSPECIFIED INGREDIENT
     Indication: THYROID HORMONE REPLACEMENT THERAPY
     Dosage: UNK

REACTIONS (3)
  - Nausea [Recovered/Resolved]
  - Gastrointestinal disorder [Recovered/Resolved]
  - Diarrhoea [Recovered/Resolved]

NARRATIVE: CASE EVENT DATE: 20160210
